FAERS Safety Report 25037429 (Version 1)
Quarter: 2025Q1

REPORT INFORMATION
  Report Type: Spontaneous
  Country: US (occurrence: US)
  Receive Date: 20250304
  Receipt Date: 20250304
  Transmission Date: 20250409
  Serious: Yes (Other)
  Sender: MYLAN
  Company Number: US-MYLANLABS-2025M1017999

PATIENT
  Sex: Female
  Weight: 77.77 kg

DRUGS (12)
  1. ZOLOFT [Suspect]
     Active Substance: SERTRALINE HYDROCHLORIDE
     Indication: Product used for unknown indication
  2. ZOLOFT [Suspect]
     Active Substance: SERTRALINE HYDROCHLORIDE
     Route: 065
  3. ZOLOFT [Suspect]
     Active Substance: SERTRALINE HYDROCHLORIDE
     Route: 065
  4. ZOLOFT [Suspect]
     Active Substance: SERTRALINE HYDROCHLORIDE
  5. RILUZOLE [Concomitant]
     Active Substance: RILUZOLE
  6. RILUZOLE [Concomitant]
     Active Substance: RILUZOLE
     Route: 065
  7. RILUZOLE [Concomitant]
     Active Substance: RILUZOLE
     Route: 065
  8. RILUZOLE [Concomitant]
     Active Substance: RILUZOLE
  9. EDARAVONE [Concomitant]
     Active Substance: EDARAVONE
  10. EDARAVONE [Concomitant]
     Active Substance: EDARAVONE
     Route: 065
  11. EDARAVONE [Concomitant]
     Active Substance: EDARAVONE
     Route: 065
  12. EDARAVONE [Concomitant]
     Active Substance: EDARAVONE

REACTIONS (7)
  - Amyotrophic lateral sclerosis [Unknown]
  - Discomfort [Unknown]
  - Decreased interest [Unknown]
  - Depressed mood [Unknown]
  - Skin disorder [Unknown]
  - Somnolence [Unknown]
  - Pruritus [Unknown]
